FAERS Safety Report 7714528 (Version 3)
Quarter: 2014Q2

REPORT INFORMATION
  Report Type: Spontaneous
  Country: CN (occurrence: CN)
  Receive Date: 20101216
  Receipt Date: 20140618
  Transmission Date: 20141212
  Serious: Yes (Death, Other)
  Sender: FDA-Public Use
  Company Number: CN-MILLENNIUM PHARMACEUTICALS, INC.-2010-06119

PATIENT
  Sex: 0

DRUGS (2)
  1. VELCADE [Suspect]
     Indication: AMYLOIDOSIS
     Dosage: 1.3 MG/M2, 1.3 MG/M2, ON DAYS 1, 4, 8 AND 11
     Route: 042
     Dates: start: 200710, end: 200905
  2. DEXAMETHASONE [Suspect]
     Indication: AMYLOIDOSIS
     Dosage: 20-40 MG, IN 100 ML OF NORMAL SALINE
     Route: 042
     Dates: start: 200710, end: 200905

REACTIONS (1)
  - Cardiac failure [Fatal]
